FAERS Safety Report 16519429 (Version 1)
Quarter: 2019Q3

REPORT INFORMATION
  Report Type: Spontaneous
  Country: SE (occurrence: SE)
  Receive Date: 20190702
  Receipt Date: 20190702
  Transmission Date: 20191004
  Serious: Yes (Hospitalization)
  Sender: FDA-Public Use
  Company Number: SE-TEVA-2019-SE-1070840

PATIENT
  Age: 28 Year
  Sex: Female

DRUGS (7)
  1. OMEPRAZOLE. [Suspect]
     Active Substance: OMEPRAZOLE
     Route: 048
     Dates: start: 20190211, end: 20190211
  2. FOLIC ACID, ANHYDROUS [Suspect]
     Active Substance: FOLIC ACID
     Route: 048
     Dates: start: 20190211, end: 20190211
  3. MELATONIN [Suspect]
     Active Substance: MELATONIN
     Dosage: 20MG
     Route: 048
     Dates: start: 20190211, end: 20190211
  4. LAMOTRIGINE. [Suspect]
     Active Substance: LAMOTRIGINE
     Dosage: 550MG
     Route: 048
     Dates: start: 20190211, end: 20190211
  5. ZOPICLONE [Suspect]
     Active Substance: ZOPICLONE
     Dosage: ^ZOPIKLON 15 MG^
     Route: 048
     Dates: start: 20190211, end: 20190211
  6. LERGIGAN (PROMETHAZINE HYDROCHLORIDE) [Suspect]
     Active Substance: PROMETHAZINE HYDROCHLORIDE
     Dosage: 200MG
     Route: 048
     Dates: start: 20190211, end: 20190211
  7. ALIMEMAZINE [Suspect]
     Active Substance: TRIMEPRAZINE
     Route: 048
     Dates: start: 20190211, end: 20190211

REACTIONS (3)
  - Intentional self-injury [Unknown]
  - Intentional overdose [Unknown]
  - Somnolence [Unknown]

NARRATIVE: CASE EVENT DATE: 20190211
